FAERS Safety Report 11045797 (Version 4)
Quarter: 2015Q4

REPORT INFORMATION
  Report Type: Spontaneous
  Country: US (occurrence: US)
  Receive Date: 20150417
  Receipt Date: 20151229
  Transmission Date: 20160304
  Serious: Yes (Hospitalization, Other)
  Sender: FDA-Public Use
  Company Number: US-009507513-1504USA015647

PATIENT
  Sex: Male

DRUGS (4)
  1. FINASTERIDE. [Suspect]
     Active Substance: FINASTERIDE
     Indication: ALOPECIA
     Dosage: 5 MG, UNK
     Route: 048
     Dates: start: 1997, end: 2001
  2. XANAX [Concomitant]
     Active Substance: ALPRAZOLAM
     Indication: ANXIETY
     Dosage: UNK
     Dates: start: 1990
  3. PROPECIA [Suspect]
     Active Substance: FINASTERIDE
     Indication: ALOPECIA
     Dosage: 5 MG, UNK
     Route: 048
     Dates: start: 1997, end: 2001
  4. VENTOLIN [Concomitant]
     Active Substance: ALBUTEROL SULFATE
     Indication: ASTHMA
     Dosage: UNK
     Dates: start: 1990

REACTIONS (31)
  - Rotator cuff repair [Unknown]
  - Benign prostatic hyperplasia [Unknown]
  - Panic disorder [Unknown]
  - Erectile dysfunction [Not Recovered/Not Resolved]
  - Chest pain [Recovered/Resolved]
  - Fatigue [Unknown]
  - Osteoarthritis [Unknown]
  - Hypogonadism [Unknown]
  - Depression [Not Recovered/Not Resolved]
  - Sexual dysfunction [Not Recovered/Not Resolved]
  - Ejaculation delayed [Unknown]
  - Gastrooesophageal reflux disease [Unknown]
  - Drug administration error [Unknown]
  - Erectile dysfunction [Unknown]
  - Diabetes mellitus [Unknown]
  - Penile pain [Unknown]
  - Ulcer [Unknown]
  - Adverse event [Unknown]
  - Anxiety [Not Recovered/Not Resolved]
  - Loss of libido [Unknown]
  - Anal fissure [Recovered/Resolved]
  - Essential hypertension [Unknown]
  - Tendonitis [Unknown]
  - Penile curvature [Unknown]
  - Blood testosterone decreased [Unknown]
  - Joint arthroplasty [Recovered/Resolved]
  - Emotional distress [Not Recovered/Not Resolved]
  - Blood cholesterol increased [Unknown]
  - Overdose [Unknown]
  - Erectile dysfunction [Unknown]
  - Ejaculation failure [Unknown]

NARRATIVE: CASE EVENT DATE: 1997
